FAERS Safety Report 6917638-X (Version None)
Quarter: 2010Q3

REPORT INFORMATION
  Report Type: 
  Country: None (occurrence: None)
  Receive Date: 20100810
  Receipt Date: 20100803
  Transmission Date: 20110219
  Serious: Yes (Hospitalization)
  Sender: FDA-Public Use
  Company Number: US-B.I. PHARMACEUTICALS,INC./RIDGEFIELD-2010-BP-08794BP

PATIENT
  Sex: Male
  Weight: 68 kg

DRUGS (7)
  1. FLOMAX [Suspect]
     Indication: HYPERTENSION
  2. CLARITIN [Suspect]
     Indication: RASH
     Dosage: 10 MG
     Route: 048
     Dates: start: 20100603
  3. ACCUPRIL [Suspect]
     Indication: HYPERTENSION
  4. NORVASC [Suspect]
     Indication: HYPERTENSION
  5. TOPROL-XL [Suspect]
     Indication: HYPERTENSION
  6. AVODART [Concomitant]
  7. HYDROCHLORZIDE [Concomitant]

REACTIONS (4)
  - DIZZINESS [None]
  - FALL [None]
  - LOSS OF CONSCIOUSNESS [None]
  - NONSPECIFIC REACTION [None]
